FAERS Safety Report 7947132-9 (Version None)
Quarter: 2011Q4

REPORT INFORMATION
  Report Type: 
  Country: None (occurrence: None)
  Receive Date: 20111129
  Receipt Date: 20111116
  Transmission Date: 20120403
  Serious: Yes (Other)
  Sender: FDA-Public Use
  Company Number: DE-ASTRAZENECA-2011SE69472

PATIENT
  Sex: Female
  Weight: 95 kg

DRUGS (5)
  1. VALPROATE SODIUM [Suspect]
     Indication: BIPOLAR DISORDER
     Route: 048
  2. AMOXICILLIN [Concomitant]
     Indication: PYELONEPHRITIS
     Route: 048
     Dates: start: 20100901
  3. QUETIAPINE [Suspect]
     Indication: BIPOLAR DISORDER
     Route: 048
     Dates: start: 20100511, end: 20110107
  4. HIPP NATAL [Concomitant]
     Indication: VITAMIN SUPPLEMENTATION
     Route: 048
  5. VALPROATE SODIUM [Suspect]
     Route: 048

REACTIONS (3)
  - INTRA-UTERINE DEATH [None]
  - MATERNAL EXPOSURE DURING PREGNANCY [None]
  - GESTATIONAL DIABETES [None]
